FAERS Safety Report 19814088 (Version 1)
Quarter: 2021Q3

REPORT INFORMATION
  Report Type: Spontaneous
  Country: US (occurrence: US)
  Receive Date: 20210910
  Receipt Date: 20210910
  Transmission Date: 20211014
  Serious: Yes (Hospitalization)
  Sender: FDA-Public Use
  Company Number: None

PATIENT
  Age: 63 Year
  Sex: Female
  Weight: 58.05 kg

DRUGS (6)
  1. RECLAST [Suspect]
     Active Substance: ZOLEDRONIC ACID
     Indication: OSTEOPOROSIS
     Dosage: ?          QUANTITY:1 INJECTION(S);?
     Route: 042
  2. FISH OIL [Concomitant]
     Active Substance: FISH OIL
  3. EYE SUPPORT SUPPLEMENT [Concomitant]
  4. MERIVA [Concomitant]
     Active Substance: HERBALS\TURMERIC
  5. CALCIUM SUPPLEMENTS [Concomitant]
     Active Substance: CALCIUM
  6. LIPOSOMAL GLUTATHIONE [Concomitant]

REACTIONS (3)
  - Unevaluable event [None]
  - Musculoskeletal stiffness [None]
  - Peripheral swelling [None]

NARRATIVE: CASE EVENT DATE: 20210909
